FAERS Safety Report 6978243-2 (Version None)
Quarter: 2010Q3

REPORT INFORMATION
  Report Type: 
  Country: None (occurrence: None)
  Receive Date: 20100913
  Receipt Date: 20100831
  Transmission Date: 20110219
  Serious: Yes (Disabling, Other)
  Sender: FDA-Public Use
  Company Number: SI-ELI_LILLY_AND_COMPANY-SI201006005680

PATIENT
  Age: 70 Year
  Sex: Female

DRUGS (6)
  1. CYMBALTA [Suspect]
     Indication: DEPRESSION
     Dosage: 60 MG, DAILY (1/D)
     Route: 065
  2. PIRACETAM [Concomitant]
     Dosage: 60 MG, 2/D
     Route: 065
  3. TELMISARTAN [Concomitant]
     Dosage: 80 MG, DAILY (1/D)
  4. STRONTIUM RANELATE [Concomitant]
     Dosage: UNK, DAILY (1/D)
  5. VIT D [Concomitant]
     Dosage: UNK, WEEKLY (1/W)
  6. ZOLPIDEM [Concomitant]
     Dosage: 10 MG, EACH EVENING

REACTIONS (7)
  - BLOOD BILIRUBIN INCREASED [None]
  - DIARRHOEA [None]
  - FAECES DISCOLOURED [None]
  - GASTROOESOPHAGEAL REFLUX DISEASE [None]
  - NAUSEA [None]
  - VERTIGO [None]
  - VOMITING [None]
